FAERS Safety Report 7818022-7 (Version None)
Quarter: 2011Q4

REPORT INFORMATION
  Report Type: 
  Country: None (occurrence: None)
  Receive Date: 20111017
  Receipt Date: 20111005
  Transmission Date: 20120403
  Serious: Yes (Death, Other)
  Sender: FDA-Public Use
  Company Number: US-CELGENEUS-163-21880-11081679

PATIENT
  Sex: Female
  Weight: 57.204 kg

DRUGS (6)
  1. ISORDIL [Concomitant]
     Dosage: 40 MILLIGRAM
     Route: 048
  2. REVLIMID [Suspect]
     Dosage: 5 MILLIGRAM
     Route: 048
     Dates: start: 20100316, end: 20110810
  3. REVLIMID [Suspect]
     Dosage: 5 MILLIGRAM
     Route: 048
     Dates: start: 20091001
  4. COUMADIN [Concomitant]
     Dosage: 5 MILLIGRAM
     Route: 048
  5. METOPROLOL SUCCINATE [Concomitant]
     Dosage: 24 MILLIGRAM
     Route: 048
  6. REVLIMID [Suspect]
     Dosage: 10 MILLIGRAM
     Route: 048
     Dates: start: 20090114, end: 20090101

REACTIONS (8)
  - NEUROPATHY PERIPHERAL [None]
  - DEATH [None]
  - CARDIAC FAILURE CONGESTIVE [None]
  - THROMBOCYTOPENIA [None]
  - DIARRHOEA [None]
  - MYELODYSPLASTIC SYNDROME [None]
  - GOUT [None]
  - NEUTROPENIA [None]
